FAERS Safety Report 6759323-3 (Version None)
Quarter: 2010Q2

REPORT INFORMATION
  Report Type: 
  Country: None (occurrence: None)
  Receive Date: 20100602
  Receipt Date: 20100515
  Transmission Date: 20101027
  Serious: Yes (Other)
  Sender: FDA-Public Use
  Company Number: 2010AP001030

PATIENT
  Age: 69 Year
  Sex: Male

DRUGS (1)
  1. METFORMIN HCL [Suspect]
     Indication: TYPE 2 DIABETES MELLITUS

REACTIONS (3)
  - HAEMATOCRIT DECREASED [None]
  - NEUROPATHY PERIPHERAL [None]
  - VITAMIN B12 DEFICIENCY [None]
